FAERS Safety Report 9928427 (Version 2)
Quarter: 2015Q4

REPORT INFORMATION
  Report Type: Report from Study
  Country: US (occurrence: US)
  Receive Date: 20140227
  Receipt Date: 20151105
  Transmission Date: 20160305
  Serious: Yes (Other)
  Sender: FDA-Public Use
  Company Number: US-ROCHE-1329689

PATIENT
  Age: 49 Year
  Sex: Female

DRUGS (10)
  1. LUCENTIS [Suspect]
     Active Substance: RANIBIZUMAB
     Route: 050
  2. FLONASE (UNITED STATES) [Concomitant]
  3. METFORMIN [Concomitant]
     Active Substance: METFORMIN HYDROCHLORIDE
  4. LUCENTIS [Suspect]
     Active Substance: RANIBIZUMAB
     Indication: DIABETIC RETINOPATHY
     Route: 050
  5. ASA [Concomitant]
     Active Substance: ASPIRIN
     Route: 065
  6. LUCENTIS [Suspect]
     Active Substance: RANIBIZUMAB
     Indication: DIABETIC EYE DISEASE
     Route: 050
  7. LUCENTIS [Suspect]
     Active Substance: RANIBIZUMAB
     Route: 050
  8. GLIMEPIRIDE. [Concomitant]
     Active Substance: GLIMEPIRIDE
  9. DIOVAN [Concomitant]
     Active Substance: VALSARTAN
  10. IBUPROFEN. [Concomitant]
     Active Substance: IBUPROFEN
     Dosage: PRN
     Route: 065

REACTIONS (12)
  - Vitreous floaters [Unknown]
  - Hypertension [Unknown]
  - Eye haemorrhage [Unknown]
  - Vitreous detachment [Recovered/Resolved]
  - Vision blurred [Unknown]
  - Myalgia [Unknown]
  - Diplopia [Unknown]
  - Macular fibrosis [Recovered/Resolved]
  - Diabetic retinal oedema [Recovered/Resolved]
  - Vitreous haemorrhage [Unknown]
  - Retinal detachment [Recovered/Resolved]
  - Muscle strain [Unknown]

NARRATIVE: CASE EVENT DATE: 201112
